FAERS Safety Report 15266776 (Version 5)
Quarter: 2018Q4

REPORT INFORMATION
  Report Type: Report from Study
  Country: US (occurrence: US)
  Receive Date: 20180810
  Receipt Date: 20181002
  Transmission Date: 20190204
  Serious: Yes (Hospitalization, Other)
  Sender: FDA-Public Use
  Company Number: US-GILEAD-2018-0354838

PATIENT
  Age: 62 Year
  Sex: Female

DRUGS (7)
  1. VELETRI [Concomitant]
     Active Substance: EPOPROSTENOL
  2. ADCIRCA [Suspect]
     Active Substance: TADALAFIL
     Dosage: 40 MG, QD
     Route: 048
     Dates: start: 20180119
  3. AMBRISENTAN [Suspect]
     Active Substance: AMBRISENTAN
     Indication: CONNECTIVE TISSUE DISORDER
     Dosage: 10 MG, UNK
     Route: 048
     Dates: start: 201607
  4. ADCIRCA [Suspect]
     Active Substance: TADALAFIL
     Indication: PULMONARY ARTERIAL HYPERTENSION
     Dosage: 20 MG, BID
     Route: 065
  5. OXYGEN. [Concomitant]
     Active Substance: OXYGEN
  6. REMODULIN [Concomitant]
     Active Substance: TREPROSTINIL
  7. AMBRISENTAN [Suspect]
     Active Substance: AMBRISENTAN
     Indication: PULMONARY ARTERIAL HYPERTENSION
     Dosage: 5 MG, QD
     Route: 065
     Dates: start: 20160725

REACTIONS (3)
  - Sepsis [Recovered/Resolved]
  - Escherichia urinary tract infection [Recovered/Resolved]
  - Pulmonary hypertension [Unknown]

NARRATIVE: CASE EVENT DATE: 20180826
